FAERS Safety Report 6737912-X (Version None)
Quarter: 2010Q2

REPORT INFORMATION
  Report Type: 
  Country: None (occurrence: None)
  Receive Date: 20100524
  Receipt Date: 20100511
  Transmission Date: 20101027
  Serious: Yes (Other)
  Sender: FDA-Public Use
  Company Number: PHHY2010IE31099

PATIENT
  Age: 63 Year
  Sex: Female

DRUGS (1)
  1. DICLOFENAC [Suspect]
     Indication: OSTEOARTHRITIS
     Dosage: 50 MG DAILY

REACTIONS (5)
  - COLITIS [None]
  - DYSPNOEA [None]
  - FATIGUE [None]
  - HELICOBACTER GASTRITIS [None]
  - IRON DEFICIENCY ANAEMIA [None]
